FAERS Safety Report 15292788 (Version 3)
Quarter: 2025Q1

REPORT INFORMATION
  Report Type: Report from Study
  Country: US (occurrence: US)
  Receive Date: 20180819
  Receipt Date: 20250206
  Transmission Date: 20250409
  Serious: Yes (Other)
  Sender: TAKEDA
  Company Number: US-SHIRE-US201831602

PATIENT
  Sex: Male

DRUGS (1)
  1. PENTASA [Suspect]
     Active Substance: MESALAMINE
     Indication: Product used for unknown indication
     Dosage: 500 MILLIGRAM, QID

REACTIONS (4)
  - Neoplasm malignant [Unknown]
  - Neuropathy peripheral [Unknown]
  - Product use issue [Unknown]
  - Insurance issue [Unknown]
